FAERS Safety Report 8765735 (Version 4)
Quarter: 2012Q4

REPORT INFORMATION
  Report Type: Report from Study
  Country: JP (occurrence: JP)
  Receive Date: 20120904
  Receipt Date: 20120919
  Transmission Date: 20130627
  Serious: Yes (Death)
  Sender: FDA-Public Use
  Company Number: JP-JNJFOC-20120810856

PATIENT
  Sex: Female

DRUGS (15)
  1. INVEGA [Suspect]
     Indication: SCHIZOPHRENIA, PARANOID TYPE
     Route: 048
     Dates: start: 20110831, end: 20110906
  2. INVEGA [Suspect]
     Indication: SCHIZOPHRENIA, PARANOID TYPE
     Route: 048
     Dates: start: 20110623, end: 20110702
  3. INVEGA [Suspect]
     Indication: SCHIZOPHRENIA, PARANOID TYPE
     Route: 048
     Dates: start: 20110703, end: 20110830
  4. INVEGA [Suspect]
     Indication: SCHIZOPHRENIA, PARANOID TYPE
     Route: 048
     Dates: start: 20110907, end: 20120527
  5. LONASEN [Suspect]
     Indication: SCHIZOPHRENIA, PARANOID TYPE
     Route: 048
     Dates: end: 20120405
  6. BENZALIN [Concomitant]
     Indication: SCHIZOPHRENIA, PARANOID TYPE
     Route: 048
     Dates: end: 20120526
  7. FLUNITRAZEPAM [Concomitant]
     Indication: SCHIZOPHRENIA, PARANOID TYPE
     Route: 048
     Dates: end: 20120526
  8. GASCON [Concomitant]
     Indication: CONSTIPATION
     Route: 048
     Dates: start: 20120327, end: 20120527
  9. GASCON [Concomitant]
     Indication: CONSTIPATION
     Route: 048
     Dates: end: 20120326
  10. PURSENNID [Concomitant]
     Indication: CONSTIPATION
     Route: 048
     Dates: end: 20120527
  11. PENTONA [Concomitant]
     Indication: PARKINSONISM
     Route: 048
     Dates: end: 20120527
  12. FRANDOL [Concomitant]
     Indication: MYOCARDIAL ISCHAEMIA
     Route: 048
     Dates: end: 20120527
  13. GASMOTIN [Concomitant]
     Indication: GASTRITIS
     Route: 048
     Dates: end: 20120527
  14. MAGMITT [Concomitant]
     Indication: CONSTIPATION
     Route: 048
     Dates: end: 20120527
  15. YODEL [Concomitant]
     Indication: CONSTIPATION
     Route: 048
     Dates: start: 20120208, end: 20120526

REACTIONS (1)
  - Ileus [Fatal]
